FAERS Safety Report 8367289-8 (Version None)
Quarter: 2012Q2

REPORT INFORMATION
  Report Type: 
  Country: None (occurrence: None)
  Receive Date: 20120517
  Receipt Date: 20120507
  Transmission Date: 20120825
  Serious: Yes (Other)
  Sender: FDA-Public Use
  Company Number: JP-BRISTOL-MYERS SQUIBB COMPANY-16576449

PATIENT
  Age: 4 Decade
  Sex: Female

DRUGS (2)
  1. TAXOL [Suspect]
     Indication: CERVIX CARCINOMA
  2. PARAPLATIN AQ [Suspect]
     Indication: CERVIX CARCINOMA

REACTIONS (1)
  - RENAL FAILURE ACUTE [None]
